FAERS Safety Report 10184604 (Version 2)
Quarter: 2014Q2

REPORT INFORMATION
  Report Type: Report from Study
  Country: US (occurrence: US)
  Receive Date: 20140521
  Receipt Date: 20140521
  Transmission Date: 20141212
  Serious: Yes (Death, Other)
  Sender: FDA-Public Use
  Company Number: US-IPSEN BIOPHARMACEUTICALS, INC.-2012-3624

PATIENT
  Age: 20 Year
  Sex: Male
  Weight: 50 kg

DRUGS (18)
  1. INCRELEX [Suspect]
     Indication: PRIMARY INSULIN LIKE GROWTH FACTOR-1 DEFICIENCY
     Route: 058
     Dates: start: 20120308, end: 20120614
  2. INCRELEX [Suspect]
     Route: 058
     Dates: start: 20120614, end: 20120803
  3. INCRELEX [Suspect]
     Route: 058
     Dates: start: 20120117, end: 20120307
  4. INCRELEX [Suspect]
     Route: 058
     Dates: start: 20110920, end: 20120116
  5. INCRELEX [Suspect]
     Route: 058
     Dates: start: 20110104, end: 20110919
  6. INCRELEX [Suspect]
     Route: 058
     Dates: start: 20101012, end: 20110103
  7. INCRELEX [Suspect]
     Route: 058
     Dates: start: 20090526, end: 20101011
  8. INCRELEX [Suspect]
     Route: 058
     Dates: start: 20090825, end: 20100426
  9. INCRELEX [Suspect]
     Route: 058
     Dates: start: 20090526, end: 20090824
  10. INCRELEX [Suspect]
     Route: 058
     Dates: start: 20090310, end: 20090525
  11. INCRELEX [Suspect]
     Route: 058
     Dates: start: 20080905, end: 20090309
  12. INCRELEX [Suspect]
     Route: 058
     Dates: start: 20080527, end: 20080904
  13. INCRELEX [Suspect]
     Route: 058
     Dates: start: 20080226, end: 20080526
  14. INCRELEX [Suspect]
     Route: 058
     Dates: start: 20071129, end: 20080225
  15. INCRELEX [Suspect]
     Route: 058
     Dates: start: 20070831, end: 20071128
  16. INCRELEX [Suspect]
     Route: 058
     Dates: start: 20070605, end: 20070830
  17. INCRELEX [Suspect]
     Route: 058
     Dates: start: 20070320, end: 20070604
  18. INCRELEX [Suspect]
     Route: 058
     Dates: start: 20061101, end: 20070319

REACTIONS (4)
  - Sudden death [Fatal]
  - Lumbar spinal stenosis [Not Recovered/Not Resolved]
  - Snoring [Recovered/Resolved]
  - Hypoglycaemia [Recovered/Resolved]
